FAERS Safety Report 9302980 (Version 1)
Quarter: 2013Q2

REPORT INFORMATION
  Report Type: Spontaneous
  Country: JP (occurrence: JP)
  Receive Date: 20130522
  Receipt Date: 20130522
  Transmission Date: 20140414
  Serious: Yes (Hospitalization)
  Sender: FDA-Public Use
  Company Number: JP-BRISTOL-MYERS SQUIBB COMPANY-18920223

PATIENT
  Age: 72 Year
  Sex: Female

DRUGS (3)
  1. ERBITUX SOLN FOR INF 5MG/ML [Suspect]
     Indication: COLORECTAL CANCER RECURRENT
     Dosage: 27MAR2013-03APR2013
     Route: 041
     Dates: start: 20120711, end: 20130406
  2. OXALIPLATIN [Suspect]
     Indication: COLORECTAL CANCER RECURRENT
     Route: 041
     Dates: start: 20120711
  3. TS-1 [Suspect]
     Indication: COLORECTAL CANCER RECURRENT
     Dosage: 27MAR2013-06APR2013
     Route: 048
     Dates: start: 20120711, end: 20130406

REACTIONS (1)
  - Femoral neck fracture [Unknown]
